FAERS Safety Report 6091643-0 (Version None)
Quarter: 2009Q1

REPORT INFORMATION
  Report Type: 
  Country: None (occurrence: None)
  Receive Date: 20090225
  Receipt Date: 20080411
  Transmission Date: 20090719
  Serious: No
  Sender: FDA-Public Use
  Company Number: A0716487A

PATIENT
  Age: 44 Year
  Sex: Female
  Weight: 56.8 kg

DRUGS (1)
  1. VALTREX [Suspect]
     Indication: PROPHYLAXIS
     Dosage: 500MG TWICE PER DAY
     Route: 048
     Dates: start: 20080227

REACTIONS (3)
  - DRUG INEFFECTIVE [None]
  - HERPES VIRUS INFECTION [None]
  - VARICELLA [None]
